FAERS Safety Report 6257181-7 (Version None)
Quarter: 2009Q3

REPORT INFORMATION
  Report Type: 
  Country: None (occurrence: None)
  Receive Date: 20090706
  Receipt Date: 20090625
  Transmission Date: 20100115
  Serious: Yes (Other)
  Sender: FDA-Public Use
  Company Number: US-JNJFOC-20090405475

PATIENT
  Sex: Female
  Weight: 83.46 kg

DRUGS (20)
  1. REMICADE [Suspect]
     Dosage: 57 INFUSIONS ADMINISTERED
     Route: 042
  2. REMICADE [Suspect]
     Indication: RHEUMATOID ARTHRITIS
     Route: 042
  3. REMICADE [Suspect]
     Indication: ANKYLOSING SPONDYLITIS
     Route: 042
  4. CLOBETASOL PROPIONATE [Concomitant]
     Route: 061
  5. METHOTREXATE [Concomitant]
  6. FUROSEMIDE [Concomitant]
  7. BONIVA [Concomitant]
  8. SKELAXIN [Concomitant]
     Indication: MUSCLE SPASMS
  9. FOLIC ACID [Concomitant]
  10. ULTRAM [Concomitant]
  11. PROPOXYPHENE NAPSYLATE AND ACETAMINOPHEN [Concomitant]
  12. NEXIUM [Concomitant]
  13. BENADRYL [Concomitant]
  14. DIOVAN [Concomitant]
  15. NORVASC [Concomitant]
  16. LIPITOR [Concomitant]
  17. TYLENOL (CAPLET) [Concomitant]
  18. POTASSIUM CHLORIDE [Concomitant]
  19. ASACOL [Concomitant]
  20. TUMS [Concomitant]

REACTIONS (3)
  - HODGKIN'S DISEASE [None]
  - SYNOVITIS [None]
  - UPPER RESPIRATORY TRACT INFECTION [None]
